FAERS Safety Report 10411987 (Version 1)
Quarter: 2014Q2

REPORT INFORMATION
  Report Type: Spontaneous
  Country: US (occurrence: None)
  Receive Date: 20140604
  Receipt Date: 20140604
  Transmission Date: 20141212
  Serious: Yes (Hospitalization)
  Sender: FDA-Public Use
  Company Number: 20130508CINRY4273

PATIENT
  Age: 23 Year
  Sex: Female

DRUGS (3)
  1. CINRYZE [Suspect]
     Indication: PROPHYLAXIS
     Dosage: 1000 UNIT, EVERY 3-4 DAYS, INTAVENOUS
     Route: 042
     Dates: start: 20130413, end: 20130508
  2. CINRYZE [Suspect]
     Indication: HEREDITARY ANGIOEDEMA
     Dosage: 1000 UNIT, EVERY 3-4 DAYS, INTAVENOUS
     Route: 042
     Dates: start: 20130413, end: 20130508
  3. CINRYZE [Suspect]
     Dosage: 1000 UNIT, EVERY 3-4 DAYS, INTAVENOUS
     Route: 042
     Dates: start: 20130413, end: 20130508

REACTIONS (4)
  - Depression [None]
  - Suicidal behaviour [None]
  - Hereditary angioedema [None]
  - Treatment noncompliance [None]
